FAERS Safety Report 8709846 (Version 3)
Quarter: 2013Q3

REPORT INFORMATION
  Report Type: Report from Study
  Country: KR (occurrence: KR)
  Receive Date: 20120806
  Receipt Date: 20130710
  Transmission Date: 20140515
  Serious: Yes (Hospitalization)
  Sender: FDA-Public Use
  Company Number: PHHO2012KR009979

PATIENT
  Sex: 0

DRUGS (3)
  1. CERTICAN [Suspect]
     Indication: RENAL TRANSPLANT
     Dosage: 1.5 MG, UNK
     Route: 048
     Dates: start: 20111020, end: 20120726
  2. NEORAL [Suspect]
     Indication: RENAL TRANSPLANT
     Dosage: 25 MG, BID
     Route: 048
     Dates: start: 20110920
  3. PRANDIN [Concomitant]
     Indication: IMMUNOSUPPRESSION
     Dosage: 6 MG, BID
     Dates: start: 20111007

REACTIONS (1)
  - Haematochezia [Recovered/Resolved]
